FAERS Safety Report 8866381 (Version 1)
Quarter: 2012Q4

REPORT INFORMATION
  Report Type: 
  Country: US (occurrence: US)
  Receive Date: 20121025
  Receipt Date: 20121025
  Transmission Date: 20130627
  Serious: Yes (Other)
  Sender: FDA-Public Use
  Company Number: US-ASTRAZENECA-2012SE79307

PATIENT
  Age: 53 Year
  Sex: Female
  Weight: 59 kg

DRUGS (5)
  1. ATENOLOL [Suspect]
     Route: 048
  2. SEROQUEL [Suspect]
     Route: 048
  3. DEXAMETHASONE [Suspect]
     Route: 065
  4. LAMICTAL [Concomitant]
  5. CARBUTROL [Concomitant]

REACTIONS (4)
  - Hypotension [Unknown]
  - Fall [Unknown]
  - Thermal burn [Unknown]
  - Loss of consciousness [Unknown]
